FAERS Safety Report 11752139 (Version 1)
Quarter: 2015Q4

REPORT INFORMATION
  Report Type: Spontaneous
  Country: US (occurrence: US)
  Receive Date: 20151118
  Receipt Date: 20151118
  Transmission Date: 20160304
  Serious: No
  Sender: FDA-Public Use
  Company Number: US-PRESTIUM-2015RN000064

PATIENT
  Sex: Female

DRUGS (2)
  1. DENAVIR [Suspect]
     Active Substance: PENCICLOVIR
     Dosage: 5 G, EVERY TWO HOURS FOR FOUR DAYS
     Route: 061
     Dates: start: 201508
  2. DENAVIR [Suspect]
     Active Substance: PENCICLOVIR
     Indication: ORAL HERPES
     Dosage: 5 G, UNK
     Route: 061
     Dates: start: 201508

REACTIONS (1)
  - Drug ineffective [Not Recovered/Not Resolved]

NARRATIVE: CASE EVENT DATE: 201508
